FAERS Safety Report 8543828-9 (Version None)
Quarter: 2012Q3

REPORT INFORMATION
  Report Type: 
  Country: None (occurrence: None)
  Receive Date: 20120727
  Receipt Date: 20120716
  Transmission Date: 20120928
  Serious: Yes (Hospitalization)
  Sender: FDA-Public Use
  Company Number: US-BAYER-2012-025535

PATIENT
  Age: 32 Year
  Sex: Female
  Weight: 72.562 kg

DRUGS (17)
  1. YAZ [Suspect]
     Indication: ACNE
  2. KLARON [Concomitant]
  3. YASMIN [Suspect]
     Indication: CONTRACEPTION
     Dosage: UNK
     Dates: start: 20060101, end: 20070301
  4. ESGIC-PLUS [Concomitant]
     Indication: MIGRAINE
     Dosage: UNK
     Dates: start: 20040101, end: 20100101
  5. YASMIN [Suspect]
     Indication: ACNE
  6. SEROQUEL [Concomitant]
     Dosage: 300 MG, DAILY
  7. NALTREXONE HYDROCHLORIDE [Concomitant]
     Dosage: 50 MG, DAILY
  8. NICOTINE [Concomitant]
  9. YAZ [Suspect]
     Indication: CONTRACEPTION
     Dosage: UNK
     Dates: start: 20070801, end: 20100301
  10. PROVIGIL [Concomitant]
     Indication: ATTENTION DEFICIT/HYPERACTIVITY DISORDER
     Dosage: 200 MG, DAILY
     Dates: start: 20100225, end: 20100325
  11. CLONAZEPAM [Concomitant]
     Indication: ANXIETY
     Dosage: 25 MG, DAILY
     Dates: start: 20060101, end: 20100301
  12. IMITREX [Concomitant]
     Indication: MIGRAINE
     Dosage: 100 MG, PRN
     Dates: start: 20040101, end: 20100101
  13. ZIANA [Concomitant]
  14. FLUOXETINE HYDROCHLORIDE [Concomitant]
     Indication: DEPRESSION
     Dosage: 80 MG, DAILY
     Dates: start: 20100101, end: 20110301
  15. VITAMIN D [Concomitant]
     Dosage: UNK
     Dates: start: 20100225, end: 20100325
  16. MULTI-VITAMINS [Concomitant]
     Dosage: UNK
     Dates: start: 20100225, end: 20100325
  17. CENTRALLY ACTING SYMPATHOMIMETICS [Concomitant]
     Indication: ATTENTION DEFICIT/HYPERACTIVITY DISORDER
     Dosage: UNK
     Dates: start: 20081001, end: 20091201

REACTIONS (8)
  - INJURY [None]
  - GENERAL PHYSICAL HEALTH DETERIORATION [None]
  - PAIN [None]
  - GRAND MAL CONVULSION [None]
  - ANXIETY [None]
  - EMOTIONAL DISTRESS [None]
  - TRANSIENT ISCHAEMIC ATTACK [None]
  - CEREBROVASCULAR ACCIDENT [None]
